FAERS Safety Report 8926167 (Version 2)
Quarter: 2013Q2

REPORT INFORMATION
  Report Type: Spontaneous
  Country: US (occurrence: US)
  Receive Date: 20121126
  Receipt Date: 20130401
  Transmission Date: 20140414
  Serious: Yes (Other)
  Sender: FDA-Public Use
  Company Number: US-BAYER-2012-121260

PATIENT
  Age: 31 Year
  Sex: Female
  Weight: 50.79 kg

DRUGS (13)
  1. YASMIN [Suspect]
     Indication: CONTRACEPTION
     Dosage: UNK
     Dates: start: 200703, end: 200807
  2. OCELLA [Suspect]
     Indication: CONTRACEPTION
     Dosage: UNK
     Dates: start: 200807, end: 200901
  3. TRAMADOL [Concomitant]
     Dosage: 500 MG, UNK
     Route: 048
  4. C MARYS/DONNATOL [Concomitant]
     Dosage: 500 MG, UNK
     Route: 048
  5. PANTOPRAZOLE SODIUM [Concomitant]
     Dosage: 40 MG, UNK
     Route: 048
  6. SINGULAIR [Concomitant]
     Indication: MULTIPLE ALLERGIES
     Dosage: 10 MG, UNK
     Route: 048
     Dates: start: 2007, end: 2010
  7. SINGULAIR [Concomitant]
     Indication: ASTHMA
  8. EPIPEN [Concomitant]
     Route: 030
  9. HYOMAX SR [Concomitant]
  10. PROPOXYPHENE APAP 100 [Concomitant]
     Route: 048
  11. ADVIL [Concomitant]
     Dosage: UNK UNK, PRN
  12. CYMBALTA [Concomitant]
     Indication: DEPRESSION
     Dosage: UNK
     Dates: start: 2007, end: 2009
  13. ANTIBIOTICS [Concomitant]

REACTIONS (5)
  - Cholecystitis chronic [None]
  - Injury [None]
  - Pain [None]
  - Pain [None]
  - Abdominal pain [None]
